FAERS Safety Report 7686580-1 (Version None)
Quarter: 2011Q3

REPORT INFORMATION
  Report Type: 
  Country: None (occurrence: None)
  Receive Date: 20110816
  Receipt Date: 20110808
  Transmission Date: 20111222
  Serious: Yes (Hospitalization, Other)
  Sender: FDA-Public Use
  Company Number: US-MERCK-1106USA02917

PATIENT
  Age: 74 Year
  Sex: Female
  Weight: 81 kg

DRUGS (48)
  1. IMMUNOTEC IMMUNOCAL [Concomitant]
     Route: 065
  2. OSTEO-BI-FLEX [Concomitant]
     Route: 065
  3. PRAVACHOL [Concomitant]
     Route: 048
  4. UBIDECARENONE [Concomitant]
     Route: 048
  5. GINGER [Concomitant]
     Route: 065
  6. ANALGESIC (UNSPECIFIED) [Concomitant]
     Route: 048
  7. HYDROCODONE [Concomitant]
     Route: 065
  8. SYNTHROID [Concomitant]
     Route: 065
  9. NEXIUM [Concomitant]
     Route: 048
  10. RESTASIS [Concomitant]
     Route: 047
  11. SKELAXIN [Concomitant]
     Route: 048
  12. SIMPLY SLEEP [Concomitant]
     Route: 065
  13. VITAMIN D (UNSPECIFIED) [Concomitant]
     Route: 048
  14. RESTORIL [Concomitant]
     Route: 048
     Dates: end: 20100101
  15. LORAZEPAM [Concomitant]
     Route: 065
  16. CITRUCEL (CALCIUM CARBONATE (+) CHOLECALCIFEROL (+) METHYLCELLULOSE) [Concomitant]
     Route: 065
  17. ULTRAM [Concomitant]
     Route: 048
  18. CORRECTOL [Concomitant]
     Route: 065
  19. BORAGE OIL AND FLAXSEED AND OMEGA-3 MARINE TRIGLYCERIDES AND SAFFLOWER [Concomitant]
     Route: 065
  20. TEA [Concomitant]
     Route: 048
  21. CELEBREX [Concomitant]
     Route: 048
  22. LIFE EXTENSION SUPER K WITH K2 [Concomitant]
     Route: 048
  23. ZOCOR [Concomitant]
     Route: 048
  24. AMBIEN [Concomitant]
     Route: 065
  25. FLUOXETINE [Concomitant]
     Route: 048
  26. FOLIC ACID [Concomitant]
     Route: 065
  27. GARLIC [Concomitant]
     Route: 065
  28. EVOXAC [Concomitant]
     Route: 065
  29. SIMVASTATIN [Concomitant]
     Route: 065
     Dates: end: 20080101
  30. IBUPROFEN [Concomitant]
     Route: 048
  31. CRANBERRY [Concomitant]
     Route: 065
  32. GRAPE SEEDS AND PHOSPHATIDYL CHOLINE AND RESVERATROL [Concomitant]
     Route: 065
  33. FOSAMAX [Suspect]
     Route: 048
     Dates: start: 20100801
  34. FOSAMAX [Suspect]
     Indication: OSTEOPENIA
     Route: 048
     Dates: start: 20060101, end: 20100101
  35. VITAMIN B COMPLEX [Concomitant]
     Route: 048
  36. ASCORBIC ACID [Concomitant]
     Route: 065
  37. VYTORIN [Concomitant]
     Route: 048
  38. ANUSOL (BISMUTH OXIDE (+) BISMUTH SUBGALLATE (+) PERUVIAN BALSAM (+) Z [Concomitant]
     Route: 054
  39. SENNA [Concomitant]
     Route: 065
  40. OMEPRAZOLE [Concomitant]
     Route: 048
  41. LIFE EXTENSION SUPER OMEGA-3 [Concomitant]
     Route: 065
  42. CITRACAL + D [Concomitant]
     Route: 065
  43. LEVOTHYROXINE SODIUM [Concomitant]
     Route: 048
  44. VITAMINS (UNSPECIFIED) [Concomitant]
     Route: 048
  45. OMEGA-3 MARINE TRIGLYCERIDES [Concomitant]
     Route: 065
  46. GASTROINTESTINAL PREPARATIONS (UNSPECIFIED) [Concomitant]
     Route: 065
  47. ANTIOXIDANTS (UNSPECIFIED) [Concomitant]
     Route: 065
  48. ICAPS [Concomitant]
     Route: 048

REACTIONS (16)
  - UPPER LIMB FRACTURE [None]
  - HAEMORRHOIDS [None]
  - VENOUS INSUFFICIENCY [None]
  - MUSCLE SPASMS [None]
  - PAIN IN EXTREMITY [None]
  - ARTHROPATHY [None]
  - LIMB DISCOMFORT [None]
  - TYPE 2 DIABETES MELLITUS [None]
  - HYPERTENSION [None]
  - DEVICE FAILURE [None]
  - ANAEMIA [None]
  - FALL [None]
  - FEMUR FRACTURE [None]
  - LOWER GASTROINTESTINAL HAEMORRHAGE [None]
  - MAJOR DEPRESSION [None]
  - ACTINIC KERATOSIS [None]
